FAERS Safety Report 7823910-1 (Version None)
Quarter: 2011Q4

REPORT INFORMATION
  Report Type: 
  Country: None (occurrence: None)
  Receive Date: 20111019
  Receipt Date: 20111012
  Transmission Date: 20120403
  Serious: Yes (Other)
  Sender: FDA-Public Use
  Company Number: US-PFIZER INC-2011203057

PATIENT
  Sex: Female

DRUGS (1)
  1. PREMARIN [Suspect]
     Indication: VULVOVAGINAL DRYNESS
     Dosage: A? G 2-3 NIGHTS A WEEK
     Route: 067
     Dates: start: 20110823

REACTIONS (2)
  - HAEMORRHAGE [None]
  - APPLICATION SITE PAIN [None]
